FAERS Safety Report 5440454-5 (Version None)
Quarter: 2007Q3

REPORT INFORMATION
  Report Type: 
  Country: None (occurrence: None)
  Receive Date: 20070831
  Receipt Date: 20070827
  Transmission Date: 20080115
  Serious: Yes (Hospitalization, Other)
  Sender: FDA-Public Use
  Company Number: IT-ELI_LILLY_AND_COMPANY-IT200706005362

PATIENT
  Age: 72 Year
  Sex: Male

DRUGS (6)
  1. ALIMTA [Suspect]
     Indication: MESOTHELIOMA MALIGNANT
     Dosage: 500 MG/M2, OTHER
     Route: 042
     Dates: start: 20070406, end: 20070507
  2. PARAPLATIN [Concomitant]
     Indication: MESOTHELIOMA MALIGNANT
     Dosage: 350 MG, 2/D
     Route: 042
     Dates: start: 20070406, end: 20070406
  3. FOLINIC ACID [Concomitant]
     Indication: PREMEDICATION
     Dosage: 400 UG, DAILY (1/D)
     Route: 048
  4. BENEXOL B12 [Concomitant]
     Indication: PREMEDICATION
  5. CORTICOSTEROIDS [Concomitant]
     Indication: PREMEDICATION
  6. CIPROXIN [Concomitant]
     Dosage: 500 MG, UNK
     Route: 048
     Dates: start: 20070501, end: 20070501

REACTIONS (3)
  - MUCOSAL INFLAMMATION [None]
  - TENDON RUPTURE [None]
  - TENDONITIS [None]
